FAERS Safety Report 5323483-1 (Version None)
Quarter: 2007Q2

REPORT INFORMATION
  Report Type: 
  Country: None (occurrence: None)
  Receive Date: 20070514
  Receipt Date: 20070508
  Transmission Date: 20071010
  Serious: Yes (Disabling)
  Sender: FDA-Public Use
  Company Number: PHFR2007GB00875

PATIENT
  Age: 62 Year
  Sex: Male
  Weight: 70.8 kg

DRUGS (9)
  1. MYCOPHENOLATE MOFETIL [Concomitant]
     Route: 065
  2. MYFORTIC [Suspect]
     Indication: RENAL TRANSPLANT
     Dosage: 1440MG DAILY
     Route: 048
     Dates: start: 20061128
  3. ALFACALCIDOL [Concomitant]
     Indication: VITAMIN D DEFICIENCY
     Dosage: 0.25UG DAILY
     Route: 048
     Dates: start: 20060818
  4. NEORAL [Concomitant]
     Indication: RENAL TRANSPLANT
     Dosage: 25 MG, BID
     Route: 048
     Dates: start: 20050707, end: 20061219
  5. PREDNISOLONE [Concomitant]
     Indication: IMMUNOSUPPRESSION
     Dosage: 5 MG, QD
     Route: 048
     Dates: start: 20050707
  6. RANITIDINE [Concomitant]
     Indication: GASTRITIS PROPHYLAXIS
     Dosage: 150MG/DAY
     Route: 048
     Dates: start: 20050707
  7. SODIUM BICARBONATE [Concomitant]
     Indication: ELECTROLYTE IMBALANCE
     Dosage: 1 G, BID
     Route: 048
     Dates: start: 20060307
  8. CIPROFLOXACIN [Concomitant]
     Indication: URINARY TRACT INFECTION
     Dosage: 250MG/DAY
     Route: 048
     Dates: start: 20060516
  9. ASPIRIN [Concomitant]
     Indication: CARDIOVASCULAR DISORDER
     Dosage: 75MG/DAY
     Route: 048
     Dates: start: 20060114

REACTIONS (6)
  - ASTHMA [None]
  - COUGH [None]
  - HERPES ZOSTER [None]
  - POSTNASAL DRIP [None]
  - RHINITIS ALLERGIC [None]
  - WHEEZING [None]
